FAERS Safety Report 7342209-3 (Version None)
Quarter: 2011Q1

REPORT INFORMATION
  Report Type: 
  Country: None (occurrence: None)
  Receive Date: 20110310
  Receipt Date: 20110304
  Transmission Date: 20110831
  Serious: Yes (Other)
  Sender: FDA-Public Use
  Company Number: BR-AMGEN-BRASP2011012587

PATIENT
  Age: 65 Year
  Sex: Male

DRUGS (5)
  1. PROPRANOLOL [Concomitant]
     Dosage: UNK
     Dates: start: 20050101
  2. ENBREL [Suspect]
     Indication: RHEUMATOID ARTHRITIS
     Dosage: UNK
     Route: 058
     Dates: start: 20070101
  3. LEFLUNOMIDE [Concomitant]
     Dosage: UNK
     Dates: start: 20070101
  4. ENALAPRIL MALEATE [Concomitant]
     Dosage: UNK
     Dates: start: 20050101
  5. PREDNISONE [Concomitant]
     Dosage: UNK
     Dates: start: 20050101

REACTIONS (1)
  - LEPROSY [None]
